FAERS Safety Report 5161081-3 (Version None)
Quarter: 2006Q4

REPORT INFORMATION
  Report Type: 
  Country: None (occurrence: None)
  Receive Date: 20061121
  Receipt Date: 20061108
  Transmission Date: 20070319
  Serious: Yes (Hospitalization)
  Sender: FDA-Public Use
  Company Number: 2006-02693

PATIENT
  Age: 76 Year
  Sex: Female
  Weight: 45 kg

DRUGS (12)
  1. VELCADE [Suspect]
     Indication: MULTIPLE MYELOMA
     Dosage: SEE IMAGE
     Route: 042
     Dates: start: 20060908
  2. VELCADE [Suspect]
     Indication: MULTIPLE MYELOMA
     Dosage: SEE IMAGE
     Route: 042
     Dates: start: 20060929
  3. THALIDOMIDE (THALIDOMIDE) TABLET [Suspect]
     Indication: MULTIPLE MYELOMA
     Dosage: 100.00 MG, ORAL
     Route: 048
     Dates: start: 20060908, end: 20061014
  4. DEXAMETHASONE [Suspect]
     Indication: MULTIPLE MYELOMA
     Dosage: 40.00 MG, ORAL
     Route: 048
     Dates: start: 20060908
  5. ASTRIX (ACETYLSALICYLIC ACID) [Concomitant]
  6. ACECLOFENAC (ACECLOFENAC) [Concomitant]
  7. OXYCONTIN [Concomitant]
  8. LASIX [Concomitant]
  9. DIMENHYDRINATE [Concomitant]
  10. MEGACE [Concomitant]
  11. MAGNESIUM OXIDE (MAGNESIUM OXIDE) [Concomitant]
  12. CARVEDILOL [Concomitant]

REACTIONS (5)
  - ASTHENIA [None]
  - DUODENAL ULCER HAEMORRHAGE [None]
  - HAEMATOCRIT DECREASED [None]
  - HAEMOGLOBIN DECREASED [None]
  - THROMBOCYTOPENIA [None]
